FAERS Safety Report 9058788 (Version 1)
Quarter: 2013Q1

REPORT INFORMATION
  Report Type: Spontaneous
  Country: US (occurrence: US)
  Receive Date: 20130204
  Receipt Date: 20130204
  Transmission Date: 20140127
  Serious: No
  Sender: FDA-Public Use
  Company Number: US-BAYER-2013-007340

PATIENT
  Age: 34 Year
  Sex: Female
  Weight: 58.05 kg

DRUGS (5)
  1. BETASERON [Suspect]
     Indication: MULTIPLE SCLEROSIS
     Dosage: 0.25 ML, QOD
     Route: 058
     Dates: start: 20091001, end: 2009
  2. BETASERON [Suspect]
     Indication: MULTIPLE SCLEROSIS
     Dosage: 0.5 ML, QOD,3-4 WEEKS
     Route: 058
     Dates: start: 2009, end: 2009
  3. BETASERON [Suspect]
     Indication: MULTIPLE SCLEROSIS
     Dosage: 0.75 ML, QOD,5-6 WEEKS
     Route: 058
     Dates: start: 2009, end: 2009
  4. BETASERON [Suspect]
     Indication: MULTIPLE SCLEROSIS
     Dosage: 1 ML, QOD 7 WEEKS
     Route: 058
     Dates: start: 2010, end: 2010
  5. BETASERON [Suspect]
     Indication: MULTIPLE SCLEROSIS
     Dosage: 0.3 MG, UNK
     Route: 058
     Dates: start: 2010

REACTIONS (2)
  - Alopecia [Unknown]
  - Hirsutism [Unknown]
